FAERS Safety Report 17162945 (Version 4)
Quarter: 2021Q4

REPORT INFORMATION
  Report Type: Spontaneous
  Country: US (occurrence: US)
  Receive Date: 20191217
  Receipt Date: 20211008
  Transmission Date: 20220303
  Serious: Yes (Hospitalization, Other)
  Sender: FDA-Public Use
  Company Number: US-GILEAD-2019-0442875

PATIENT
  Age: 47 Year
  Sex: Female

DRUGS (52)
  1. COMPLERA [Suspect]
     Active Substance: EMTRICITABINE\RILPIVIRINE HYDROCHLORIDE\TENOFOVIR DISOPROXIL FUMARATE
     Indication: HIV infection
     Dosage: 1 DOSAGE FORM (200-25-300 MG), QD
     Route: 048
     Dates: start: 201302, end: 201510
  2. COMPLERA [Suspect]
     Active Substance: EMTRICITABINE\RILPIVIRINE HYDROCHLORIDE\TENOFOVIR DISOPROXIL FUMARATE
     Dosage: 1 DOSAGE FORM (200-25-300 MG), QD
     Route: 048
     Dates: start: 201511, end: 201812
  3. STRIBILD [Suspect]
     Active Substance: COBICISTAT\ELVITEGRAVIR\EMTRICITABINE\TENOFOVIR DISOPROXIL FUMARATE
     Indication: HIV infection
     Dosage: 1 DOSAGE FORM, QD
     Route: 048
     Dates: start: 201812, end: 201904
  4. TRUVADA [Suspect]
     Active Substance: EMTRICITABINE\TENOFOVIR DISOPROXIL FUMARATE
     Indication: HIV infection
     Dosage: UNK
     Route: 048
     Dates: start: 201510, end: 201511
  5. TRUVADA [Suspect]
     Active Substance: EMTRICITABINE\TENOFOVIR DISOPROXIL FUMARATE
     Dosage: UNK
     Route: 048
     Dates: start: 201805
  6. METFORMIN [Suspect]
     Active Substance: METFORMIN HYDROCHLORIDE
     Indication: Type 2 diabetes mellitus
     Dosage: 500 MG, QD
     Route: 048
  7. BIKTARVY [Concomitant]
     Active Substance: BICTEGRAVIR SODIUM\EMTRICITABINE\TENOFOVIR ALAFENAMIDE FUMARATE
  8. DESCOVY [Concomitant]
     Active Substance: EMTRICITABINE\TENOFOVIR ALAFENAMIDE FUMARATE
     Dosage: 1 DOSAGE FORM (200-25 MG), QD
     Route: 048
     Dates: start: 201904
  9. BASAGLAR [Concomitant]
     Active Substance: INSULIN GLARGINE
  10. ADMELOG [Concomitant]
     Active Substance: INSULIN LISPRO
  11. PRAVASTATIN [Concomitant]
     Active Substance: PRAVASTATIN
  12. MIRTAZAPINE [Concomitant]
     Active Substance: MIRTAZAPINE
  13. TRAZODONE [Concomitant]
     Active Substance: TRAZODONE HYDROCHLORIDE
  14. BUSPIRONE [Concomitant]
     Active Substance: BUSPIRONE HYDROCHLORIDE
  15. DULOXETINE [Concomitant]
     Active Substance: DULOXETINE
  16. GABAPENTIN [Concomitant]
     Active Substance: GABAPENTIN
  17. AMBIEN [Concomitant]
     Active Substance: ZOLPIDEM TARTRATE
  18. ASPIRIN [Concomitant]
     Active Substance: ASPIRIN
  19. ATORVASTATIN [Concomitant]
     Active Substance: ATORVASTATIN
  20. FERROUS SULFATE [Concomitant]
     Active Substance: FERROUS SULFATE
  21. FLUTICASONE PROPIONATE [Concomitant]
     Active Substance: FLUTICASONE PROPIONATE
  22. LOPERAMIDE [Concomitant]
     Active Substance: LOPERAMIDE
  23. SODIUM BICARBONATE [Concomitant]
     Active Substance: SODIUM BICARBONATE
  24. K PHOS NEUTRAL [Concomitant]
     Active Substance: POTASSIUM PHOSPHATE, MONOBASIC\SODIUM PHOSPHATE, DIBASIC, ANHYDROUS\SODIUM PHOSPHATE, MONOBASIC, MON
  25. CALCITRIOL [Concomitant]
     Active Substance: CALCITRIOL
  26. TIVICAY [Concomitant]
     Active Substance: DOLUTEGRAVIR SODIUM
     Dosage: UNK
     Dates: start: 201904
  27. BACLOFEN [Concomitant]
     Active Substance: BACLOFEN
  28. LIDODERM [Concomitant]
     Active Substance: LIDOCAINE
  29. PERCOCET [Concomitant]
     Active Substance: ACETAMINOPHEN\OXYCODONE HYDROCHLORIDE
  30. EDURANT [Concomitant]
     Active Substance: RILPIVIRINE HYDROCHLORIDE
  31. RETACRIT [Concomitant]
     Active Substance: EPOETIN ALFA-EPBX
  32. AMPICILLIN [Concomitant]
     Active Substance: AMPICILLIN
  33. ALOGLIPTIN BENZOATE [Concomitant]
     Active Substance: ALOGLIPTIN BENZOATE
  34. GLIPIZIDE [Concomitant]
     Active Substance: GLIPIZIDE
  35. JANUVIA [Concomitant]
     Active Substance: SITAGLIPTIN PHOSPHATE
  36. POTASSIUM CHLORIDE [Concomitant]
     Active Substance: POTASSIUM CHLORIDE
  37. PROCRIT [Concomitant]
     Active Substance: ERYTHROPOIETIN
  38. POTASSIUM CITRATE [Concomitant]
     Active Substance: POTASSIUM CITRATE
  39. POTASSIUM PHOSPHATES [Concomitant]
     Active Substance: POTASSIUM PHOSPHATE, DIBASIC\POTASSIUM PHOSPHATE, MONOBASIC
  40. EPOGEN [Concomitant]
     Active Substance: ERYTHROPOIETIN
  41. VENOFER [Concomitant]
     Active Substance: IRON SUCROSE
  42. QUETIAPINE [Concomitant]
     Active Substance: QUETIAPINE
  43. ZOFRAN [Concomitant]
     Active Substance: ONDANSETRON HYDROCHLORIDE
  44. KEPPRA [Concomitant]
     Active Substance: LEVETIRACETAM
  45. HUMALOG [Concomitant]
     Active Substance: INSULIN LISPRO
  46. NOVOLOG [Concomitant]
     Active Substance: INSULIN ASPART
  47. CHOLECALCIFEROL [Concomitant]
     Active Substance: CHOLECALCIFEROL
  48. HUMULIN NOS [Concomitant]
     Active Substance: INSULIN HUMAN
  49. CEPHALEXIN [Concomitant]
     Active Substance: CEPHALEXIN
  50. ALOGLIPTIN;METFORMIN [Concomitant]
  51. VITAMINS NOS [Concomitant]
     Active Substance: VITAMINS
  52. GLIMEPIRIDE [Concomitant]
     Active Substance: GLIMEPIRIDE

REACTIONS (9)
  - Chronic kidney disease [Not Recovered/Not Resolved]
  - Acute kidney injury [Recovered/Resolved]
  - Fanconi syndrome acquired [Not Recovered/Not Resolved]
  - Renal failure [Unknown]
  - Pain [Unknown]
  - Emotional distress [Unknown]
  - Anxiety [Unknown]
  - Anhedonia [Unknown]
  - Economic problem [Unknown]

NARRATIVE: CASE EVENT DATE: 20181101
